FAERS Safety Report 4440967-9 (Version None)
Quarter: 2004Q3

REPORT INFORMATION
  Report Type: 
  Country: None (occurrence: None)
  Receive Date: 20040728
  Receipt Date: 20040408
  Transmission Date: 20050211
  Serious: No
  Sender: FDA-Public Use
  Company Number: USA040464468

PATIENT
  Age: 8 Year
  Sex: Female
  Weight: 27 kg

DRUGS (1)
  1. STRATTERA [Suspect]
     Dosage: 18 MG/L DAY
     Dates: start: 20040405

REACTIONS (3)
  - DIZZINESS [None]
  - STOMACH DISCOMFORT [None]
  - VISION BLURRED [None]
